FAERS Safety Report 13500358 (Version 5)
Quarter: 2017Q2

REPORT INFORMATION
  Report Type: Spontaneous
  Country: AU (occurrence: AU)
  Receive Date: 20170501
  Receipt Date: 20170612
  Transmission Date: 20170830
  Serious: Yes (Life-Threatening, Hospitalization, Other)
  Sender: FDA-Public Use
  Company Number: AU-PFIZER INC-2017188634

PATIENT
  Age: 34 Year
  Sex: Female

DRUGS (32)
  1. SPIRONOLACTONE. [Suspect]
     Active Substance: SPIRONOLACTONE
     Dosage: 25 MG, DAILY (AT NIGHT)
     Route: 065
  2. VALPROATE SODIUM. [Suspect]
     Active Substance: VALPROATE SODIUM
     Dosage: 500 MG, 2X/DAY
     Route: 048
  3. CHLORPROMAZINE. [Concomitant]
     Active Substance: CHLORPROMAZINE
     Dosage: 200 MG, DAILY (50 MG-100 MG, Q6H)
  4. PARACETAMOL SANDOZ [Suspect]
     Active Substance: ACETAMINOPHEN
     Dosage: UNK
     Route: 065
  5. FRUSEMIDE [Suspect]
     Active Substance: FUROSEMIDE
     Dosage: 40 MG, DAILY (AT NIGHT)
     Route: 065
  6. IVABRADINE [Suspect]
     Active Substance: IVABRADINE
     Dosage: 5 MG, 2X/DAY
     Route: 065
  7. METFORMIN HCL [Suspect]
     Active Substance: METFORMIN HYDROCHLORIDE
     Dosage: 500 MG, 2X/DAY
     Route: 065
  8. PANTOPRAZOLE [Suspect]
     Active Substance: PANTOPRAZOLE
     Dosage: 40 MG, DAILY (MORNING)
     Route: 065
  9. VYTORIN [Suspect]
     Active Substance: EZETIMIBE\SIMVASTATIN
     Dosage: 10/40MG AT NIGHT
     Route: 065
  10. QUETIAPINE. [Suspect]
     Active Substance: QUETIAPINE
     Dosage: 200 MG, DAILY
     Route: 065
  11. SPIRONOLACTONE. [Suspect]
     Active Substance: SPIRONOLACTONE
     Dosage: 20 MG, DAILY
     Route: 065
  12. FRUSEMIDE [Suspect]
     Active Substance: FUROSEMIDE
     Dosage: 20 MG, DAILY
     Route: 065
  13. COLOXYL [Suspect]
     Active Substance: DOCUSATE SODIUM
     Dosage: 2 DF, DAILY (AT BEDTIME)
     Route: 065
  14. SYMBICORT [Concomitant]
     Active Substance: BUDESONIDE\FORMOTEROL FUMARATE DIHYDRATE
     Dosage: 200/6 MCG, 2 PUFFS, TWICE DAILY
  15. PROMETHAZINE [Concomitant]
     Active Substance: PROMETHAZINE\PROMETHAZINE HYDROCHLORIDE
     Dosage: UNK
  16. EZETIMIBE. [Concomitant]
     Active Substance: EZETIMIBE
     Dosage: 10 MG, EVERY NIGHT
  17. METFORMIN HCL [Suspect]
     Active Substance: METFORMIN HYDROCHLORIDE
     Dosage: 2 G, DAILY
     Route: 065
  18. SERTRALINE HCL [Suspect]
     Active Substance: SERTRALINE HYDROCHLORIDE
     Dosage: 200 MG, DAILY
     Route: 065
  19. FLUVOXAMINE [Suspect]
     Active Substance: FLUVOXAMINE
     Dosage: 150 MG, UNK (AT BEDTIME)
     Route: 065
  20. SIMVASTATIN. [Suspect]
     Active Substance: SIMVASTATIN
     Dosage: 80 MG, AT BEDTIME
     Route: 065
  21. SIMVASTATIN. [Suspect]
     Active Substance: SIMVASTATIN
     Dosage: UNK
     Route: 065
  22. NALOXONE HCL [Suspect]
     Active Substance: NALOXONE HYDROCHLORIDE
     Dosage: 10 MG, 2X/DAY
     Route: 065
  23. VALPROATE SODIUM. [Suspect]
     Active Substance: VALPROATE SODIUM
     Dosage: 400 MG, 2X/DAY
     Route: 048
  24. OXYCODONE [Suspect]
     Active Substance: OXYCODONE
     Dosage: 20 MG, 2X/DAY
     Route: 065
  25. MOVICOL [Concomitant]
     Active Substance: POLYETHYLENE GLYCOL 3350\POTASSIUM CHLORIDE\SODIUM BICARBONATE\SODIUM CHLORIDE
     Dosage: 2 SACHETS, Q24H, MAX. 2 SATCHET/DAY.
  26. LORAZEPAM. [Concomitant]
     Active Substance: LORAZEPAM
     Dosage: 1 MG-2. MG, Q4H,
  27. BISOPROLOL SANDOZ [Suspect]
     Active Substance: BISOPROLOL
     Dosage: 2.5 MG, DAILY
     Route: 065
  28. ZUCLOPENTHIXOL [Suspect]
     Active Substance: ZUCLOPENTHIXOL
     Dosage: 40 MG, AT BEDTIME
     Route: 065
  29. SALBUTAMOL [Concomitant]
     Active Substance: ALBUTEROL
     Dosage: 2 DF, MAX.
  30. DIAZEPAM. [Concomitant]
     Active Substance: DIAZEPAM
     Dosage: 10 MG, EVERY NIGHT
  31. RAMIPRIL. [Suspect]
     Active Substance: RAMIPRIL
     Dosage: 2.5 MG, DAILY (AT BEDTIME)
     Route: 065
  32. PARACETAMOL SANDOZ [Suspect]
     Active Substance: ACETAMINOPHEN
     Dosage: 1 G, EVERY 6 HOURS
     Route: 065

REACTIONS (9)
  - Congestive cardiomyopathy [Unknown]
  - Suicide attempt [Unknown]
  - Mental disorder [Unknown]
  - Personality disorder [Unknown]
  - Electrocardiogram QT prolonged [Unknown]
  - Depression [Unknown]
  - Intentional self-injury [Unknown]
  - Ejection fraction decreased [Unknown]
  - Chest pain [Unknown]

NARRATIVE: CASE EVENT DATE: 20150908
